FAERS Safety Report 12547241 (Version 2)
Quarter: 2016Q3

REPORT INFORMATION
  Report Type: Spontaneous
  Country: US (occurrence: US)
  Receive Date: 20160711
  Receipt Date: 20160804
  Transmission Date: 20161109
  Serious: No
  Sender: FDA-Public Use
  Company Number: US-ASTRAZENECA-2016SE61328

PATIENT
  Age: 738 Month
  Sex: Female
  Weight: 72.6 kg

DRUGS (20)
  1. PAXIL [Concomitant]
     Active Substance: PAROXETINE HYDROCHLORIDE
     Indication: DEPRESSION
     Route: 048
     Dates: start: 201504
  2. PAXIL [Concomitant]
     Active Substance: PAROXETINE HYDROCHLORIDE
     Indication: BIPOLAR DISORDER
     Route: 048
     Dates: start: 2011
  3. QUETIAPINE. [Suspect]
     Active Substance: QUETIAPINE
     Indication: MOOD SWINGS
     Route: 048
     Dates: start: 201504, end: 201604
  4. QUETIAPINE. [Suspect]
     Active Substance: QUETIAPINE
     Indication: DEPRESSION
     Route: 048
     Dates: start: 201504, end: 201604
  5. QUETIAPINE. [Suspect]
     Active Substance: QUETIAPINE
     Indication: MOOD SWINGS
     Route: 048
     Dates: start: 201503
  6. QUETIAPINE. [Suspect]
     Active Substance: QUETIAPINE
     Indication: MOOD SWINGS
     Route: 048
  7. QUETIAPINE. [Suspect]
     Active Substance: QUETIAPINE
     Indication: MOOD SWINGS
     Route: 048
     Dates: end: 20160331
  8. QUETIAPINE. [Suspect]
     Active Substance: QUETIAPINE
     Indication: DEPRESSION
     Route: 048
     Dates: end: 20160331
  9. PAXIL [Concomitant]
     Active Substance: PAROXETINE HYDROCHLORIDE
     Indication: DEPRESSION
     Route: 048
     Dates: start: 2011
  10. QUETIAPINE. [Suspect]
     Active Substance: QUETIAPINE
     Indication: DEPRESSION
     Route: 048
     Dates: start: 201503
  11. QUETIAPINE. [Suspect]
     Active Substance: QUETIAPINE
     Indication: BIPOLAR DISORDER
     Route: 048
  12. QUETIAPINE. [Suspect]
     Active Substance: QUETIAPINE
     Indication: BIPOLAR DISORDER
     Route: 048
     Dates: start: 201504, end: 201604
  13. QUETIAPINE. [Suspect]
     Active Substance: QUETIAPINE
     Indication: DEPRESSION
     Route: 048
  14. PAXIL [Concomitant]
     Active Substance: PAROXETINE HYDROCHLORIDE
     Indication: BIPOLAR DISORDER
     Route: 048
     Dates: start: 201504
  15. MELATONIN [Concomitant]
     Active Substance: MELATONIN
     Route: 002
     Dates: start: 201504
  16. BUSPIRONE [Concomitant]
     Active Substance: BUSPIRONE HYDROCHLORIDE
     Indication: TEMPERATURE REGULATION DISORDER
     Route: 048
     Dates: start: 20160321
  17. QUETIAPINE. [Suspect]
     Active Substance: QUETIAPINE
     Indication: BIPOLAR DISORDER
     Route: 048
     Dates: end: 20160331
  18. BUSPAR [Concomitant]
     Active Substance: BUSPIRONE HYDROCHLORIDE
     Indication: BIPOLAR DISORDER
     Route: 048
     Dates: start: 201604
  19. QUETIAPINE. [Suspect]
     Active Substance: QUETIAPINE
     Indication: BIPOLAR DISORDER
     Route: 048
     Dates: start: 201503
  20. ATORVASTATIN [Concomitant]
     Active Substance: ATORVASTATIN
     Indication: BLOOD CHOLESTEROL ABNORMAL
     Route: 048

REACTIONS (11)
  - Pollakiuria [Unknown]
  - Confusional state [Unknown]
  - Headache [Unknown]
  - Stress [Unknown]
  - Hypersomnia [Unknown]
  - Weight increased [Unknown]
  - Visual impairment [Unknown]
  - Thirst [Unknown]
  - Dizziness [Unknown]
  - Fatigue [Unknown]
  - Asthenia [Unknown]

NARRATIVE: CASE EVENT DATE: 201504
